FAERS Safety Report 10967074 (Version 1)
Quarter: 2015Q1

REPORT INFORMATION
  Report Type: Spontaneous
  Country: US (occurrence: None)
  Receive Date: 20150327
  Receipt Date: 20150327
  Transmission Date: 20150721
  Serious: Yes (Life-Threatening)
  Sender: FDA-Public Use
  Company Number: None

PATIENT
  Age: 26 Year
  Sex: Female
  Weight: 54.43 kg

DRUGS (1)
  1. SKYLA [Suspect]
     Active Substance: LEVONORGESTREL

REACTIONS (6)
  - Nausea [None]
  - Muscle spasms [None]
  - Procedural pain [None]
  - Presyncope [None]
  - Loss of consciousness [None]
  - Hypoaesthesia [None]

NARRATIVE: CASE EVENT DATE: 20150325
